FAERS Safety Report 4436016-9 (Version None)
Quarter: 2004Q3

REPORT INFORMATION
  Report Type: 
  Country: None (occurrence: None)
  Receive Date: 20040826
  Receipt Date: 20040813
  Transmission Date: 20050211
  Serious: Yes (Death)
  Sender: FDA-Public Use
  Company Number: K200401230

PATIENT
  Age: 73 Year
  Sex: Female

DRUGS (8)
  1. SONATA [Suspect]
     Indication: INSOMNIA
     Dosage: 5 MG, QHS, ORAL;1 0 MG, QHS, ORAL
     Route: 048
     Dates: start: 20040608, end: 20040101
  2. SONATA [Suspect]
     Indication: INSOMNIA
     Dosage: 5 MG, QHS, ORAL;1 0 MG, QHS, ORAL
     Route: 048
     Dates: start: 20040630, end: 20040101
  3. BUSPAR [Concomitant]
  4. KCL (POTASSIUM CHLORIDE) [Concomitant]
  5. HYDROCHLOROTHIAZIDE [Concomitant]
  6. INDERAL ^IMPERIAL CHEMICAL INDUSTRIES^ (PROPANOLOL HYDROCHLORIDE) [Concomitant]
  7. PREVACID [Concomitant]
  8. FUROSEMIDE [Concomitant]

REACTIONS (1)
  - HEPATIC FAILURE [None]
